FAERS Safety Report 13024366 (Version 1)
Quarter: 2016Q4

REPORT INFORMATION
  Report Type: Spontaneous
  Country: DK (occurrence: DK)
  Receive Date: 20161213
  Receipt Date: 20161213
  Transmission Date: 20170207
  Serious: Yes (Hospitalization)
  Sender: FDA-Public Use
  Company Number: DK-009507513-1612DNK002674

PATIENT
  Age: 36 Year
  Sex: Female

DRUGS (2)
  1. PEGINTRON [Suspect]
     Active Substance: PEGINTERFERON ALFA-2B
     Indication: MYELOFIBROSIS
     Dosage: STRENGTH: 50 ?G/0.5 ML.
     Route: 058
  2. HJERTEMAGNYL (ASPIRIN) [Concomitant]
     Indication: THROMBOSIS PROPHYLAXIS

REACTIONS (2)
  - Myocarditis [Recovering/Resolving]
  - Painful respiration [Recovering/Resolving]

NARRATIVE: CASE EVENT DATE: 201611
